FAERS Safety Report 23589135 (Version 1)
Quarter: 2024Q1

REPORT INFORMATION
  Report Type: Report from Study
  Country: US (occurrence: US)
  Receive Date: 20240303
  Receipt Date: 20240303
  Transmission Date: 20240410
  Serious: Yes (Hospitalization, Other)
  Sender: FDA-Public Use
  Company Number: US-ABBVIE-5406119

PATIENT
  Sex: Male

DRUGS (2)
  1. HUMIRA [Suspect]
     Active Substance: ADALIMUMAB
     Indication: Rheumatoid arthritis
     Route: 058
     Dates: start: 20220330, end: 20231230
  2. HUMIRA [Suspect]
     Active Substance: ADALIMUMAB
     Route: 058
     Dates: start: 20230330

REACTIONS (7)
  - Hospitalisation [Recovered/Resolved]
  - Abdominal pain upper [Not Recovered/Not Resolved]
  - Hepatic cirrhosis [Unknown]
  - Dizziness [Recovering/Resolving]
  - Hospitalisation [Not Recovered/Not Resolved]
  - Hypertension [Unknown]
  - Cerebral disorder [Unknown]

NARRATIVE: CASE EVENT DATE: 20230101
